FAERS Safety Report 5091044-8 (Version None)
Quarter: 2006Q3

REPORT INFORMATION
  Report Type: 
  Country: None (occurrence: None)
  Receive Date: 20060829
  Receipt Date: 20050728
  Transmission Date: 20061208
  Serious: No
  Sender: FDA-Public Use
  Company Number: US-GLAXOSMITHKLINE-A0568124A

PATIENT
  Age: 13 Year
  Sex: Female

DRUGS (1)
  1. ZOVIRAX [Suspect]
     Route: 048
     Dates: start: 20050101, end: 20050101

REACTIONS (1)
  - DRUG INEFFECTIVE [None]
